FAERS Safety Report 9501496 (Version 1)
Quarter: 2013Q1

REPORT INFORMATION
  Report Type: Spontaneous
  Country: US (occurrence: None)
  Receive Date: 20130107
  Receipt Date: 20130107
  Transmission Date: 20140127
  Serious: No
  Sender: FDA-Public Use
  Company Number: PHEH2012US017197

PATIENT
  Age: 28 Year
  Sex: Female
  Weight: 51.7 kg

DRUGS (6)
  1. GILENYA (FTY) CAPSULE, 0.5MG [Suspect]
     Indication: MULTIPLE SCLEROSIS
     Route: 048
     Dates: start: 20120830, end: 20120915
  2. NORTRIPTYLINE (NORTRIPTYLINE) [Concomitant]
  3. LOESTRIN (ETHINYLESTRADIOL, NORETHISTERONE ACETATE) [Concomitant]
  4. SPIRONOLACTONE (SPIRONOLACTONE) [Concomitant]
  5. VITAMIN E (TOCOPHEROL) [Concomitant]
  6. COD-LIVER OIL (COD-LIVER OIL) [Concomitant]

REACTIONS (3)
  - Aphthous stomatitis [None]
  - Panic attack [None]
  - Abdominal discomfort [None]
